FAERS Safety Report 20960673 (Version 2)
Quarter: 2023Q1

REPORT INFORMATION
  Report Type: Spontaneous
  Country: JP (occurrence: JP)
  Receive Date: 20220615
  Receipt Date: 20230125
  Transmission Date: 20230418
  Serious: Yes (Hospitalization, Other)
  Sender: FDA-Public Use
  Company Number: JP-SA-SAC20220609000493

PATIENT
  Age: 72 Year
  Sex: Male

DRUGS (3)
  1. OXALIPLATIN [Suspect]
     Active Substance: OXALIPLATIN
     Indication: Colorectal cancer stage III
     Dosage: UNK UNK, QCY
     Dates: start: 20170713, end: 20180305
  2. LEUCOVORIN [Suspect]
     Active Substance: LEUCOVORIN
     Indication: Colorectal cancer stage III
     Dosage: UNK UNK, QCY
     Dates: start: 20170713, end: 20180305
  3. FLUOROURACIL [Suspect]
     Active Substance: FLUOROURACIL
     Indication: Colorectal cancer stage III
     Dosage: UNK, QCY
     Dates: start: 20170713, end: 20180305

REACTIONS (8)
  - Varicose vein [Recovering/Resolving]
  - Haemorrhage [Recovering/Resolving]
  - Faeces discoloured [Recovering/Resolving]
  - Varices oesophageal [Recovering/Resolving]
  - Gastric varices [Recovering/Resolving]
  - Thrombocytopenia [Unknown]
  - Drug-induced liver injury [Not Recovered/Not Resolved]
  - Splenomegaly [Not Recovered/Not Resolved]

NARRATIVE: CASE EVENT DATE: 20171001
